FAERS Safety Report 17341854 (Version 1)
Quarter: 2020Q1

REPORT INFORMATION
  Report Type: Spontaneous
  Country: CA (occurrence: CA)
  Receive Date: 20200129
  Receipt Date: 20200129
  Transmission Date: 20200409
  Serious: Yes (Hospitalization)
  Sender: FDA-Public Use
  Company Number: CA-PFIZER INC-2019530746

PATIENT
  Age: 44 Year
  Sex: Female

DRUGS (4)
  1. MIDAZOLAM HYDROCHLORIDE. [Suspect]
     Active Substance: MIDAZOLAM HYDROCHLORIDE
     Dosage: UNK (ONCE BETWEEN 1 TO 3 MG)
     Route: 042
     Dates: start: 20191228, end: 20191228
  2. FENTANYL CITRATE. [Suspect]
     Active Substance: FENTANYL CITRATE
     Indication: SEDATION
     Dosage: UNK
  3. FENTANYL CITRATE. [Suspect]
     Active Substance: FENTANYL CITRATE
     Dosage: UNK (ONCE AT DOSE BETWEEN 50MG TO 100MG)
     Route: 042
     Dates: start: 20191228, end: 20191228
  4. MIDAZOLAM HYDROCHLORIDE. [Suspect]
     Active Substance: MIDAZOLAM HYDROCHLORIDE
     Indication: SEDATION
     Dosage: UNK (ONCE BETWEEN 1 TO 3 MG)
     Route: 042
     Dates: start: 20191228, end: 20191228

REACTIONS (2)
  - Sensitive skin [Unknown]
  - Injection site erythema [Unknown]

NARRATIVE: CASE EVENT DATE: 20191228
